FAERS Safety Report 8791706 (Version 2)
Quarter: 2013Q1

REPORT INFORMATION
  Report Type: Spontaneous
  Country: FR (occurrence: FR)
  Receive Date: 20120918
  Receipt Date: 20130111
  Transmission Date: 20140127
  Serious: Yes (Hospitalization)
  Sender: FDA-Public Use
  Company Number: FR-ASTRAZENECA-2012SE71256

PATIENT
  Age: 54 Year
  Sex: Male

DRUGS (10)
  1. XEROQUEL [Suspect]
     Route: 048
     Dates: start: 20120618, end: 20120710
  2. TEGRETOL LP [Suspect]
     Route: 048
     Dates: start: 20120604, end: 20120710
  3. LYSANXIA [Concomitant]
  4. TERALITHE [Concomitant]
  5. HEPTAMYL [Concomitant]
  6. PRACETAMOL [Concomitant]
  7. KARDEGIC [Concomitant]
  8. TRIATEC [Concomitant]
     Route: 048
  9. INEXIUM [Concomitant]
     Route: 048
  10. QUETIAPINE [Concomitant]
     Route: 048

REACTIONS (1)
  - Drug reaction with eosinophilia and systemic symptoms [Recovering/Resolving]
